FAERS Safety Report 7744893-9 (Version None)
Quarter: 2011Q3

REPORT INFORMATION
  Report Type: 
  Country: None (occurrence: None)
  Receive Date: 20110912
  Receipt Date: 20110905
  Transmission Date: 20111222
  Serious: Yes (Hospitalization)
  Sender: FDA-Public Use
  Company Number: FR-BRISTOL-MYERS SQUIBB COMPANY-16035933

PATIENT
  Age: 93 Year
  Sex: Female

DRUGS (12)
  1. CORDARONE [Concomitant]
  2. PULMICORT [Concomitant]
  3. PREDNISOLONE [Concomitant]
     Dosage: ORODISPERSIBLE TABS
  4. COUMADIN [Suspect]
     Dosage: INTERRUPTED ON AN UNKNOWN DATE; RECHALLENGED ON 20-FEB-2011; THRICE DAILY SINCE 20-FEB-2011
     Route: 048
     Dates: end: 20110222
  5. NEBIVOLOL HCL [Concomitant]
     Dosage: 1 QUAD SCORED TAB
  6. CALCIPARINE [Suspect]
     Route: 058
     Dates: start: 20110215, end: 20110222
  7. FUROSEMIDE [Concomitant]
     Dosage: SCORED TABS
  8. RABEPRAZOLE SODIUM [Concomitant]
     Dosage: 1 GASTRO RESITANT TAB
  9. IMOVANE [Concomitant]
  10. VENTOLIN [Concomitant]
  11. STABLON [Concomitant]
  12. ATROVENT [Concomitant]

REACTIONS (2)
  - LUNG DISORDER [None]
  - HAEMATOMA [None]
